FAERS Safety Report 24378579 (Version 1)
Quarter: 2024Q3

REPORT INFORMATION
  Report Type: Spontaneous
  Country: US (occurrence: None)
  Receive Date: 20240927
  Receipt Date: 20240927
  Transmission Date: 20241016
  Serious: Yes (Hospitalization)
  Sender: Public
  Company Number: None

PATIENT
  Age: 37 Year
  Sex: Male
  Weight: 104 kg

DRUGS (1)
  1. SULFAMETHOXAZOLE AND TRIMETHOPRIM [Suspect]
     Active Substance: SULFAMETHOXAZOLE\TRIMETHOPRIM
     Indication: Skin bacterial infection
     Dates: end: 20231124

REACTIONS (4)
  - Leukopenia [None]
  - Rash [None]
  - Thrombocytopenia [None]
  - Rash maculo-papular [None]

NARRATIVE: CASE EVENT DATE: 20231124
